FAERS Safety Report 6070644-2 (Version None)
Quarter: 2009Q1

REPORT INFORMATION
  Report Type: 
  Country: None (occurrence: None)
  Receive Date: 20090209
  Receipt Date: 20090128
  Transmission Date: 20090719
  Serious: Yes (Life-Threatening, Hospitalization, Other)
  Sender: FDA-Public Use
  Company Number: JP-PFIZER INC-9927234

PATIENT

DRUGS (3)
  1. ATARAX [Suspect]
     Indication: URTICARIA
     Dosage: 75 MG, 1X/DAY
     Route: 048
     Dates: start: 19990328, end: 19990401
  2. ATARAX [Suspect]
     Indication: PRURIGO
  3. PARAMETHASONE [Concomitant]
     Indication: PRURIGO
     Dosage: DAILY
     Dates: start: 19990328, end: 19990331

REACTIONS (9)
  - ELECTROCARDIOGRAM QT PROLONGED [None]
  - GENE MUTATION IDENTIFICATION TEST [None]
  - PALPITATIONS [None]
  - PREGNANCY [None]
  - SYNCOPE [None]
  - TINNITUS [None]
  - TORSADE DE POINTES [None]
  - VENTRICULAR ARRHYTHMIA [None]
  - VERTIGO [None]
